FAERS Safety Report 24916317 (Version 1)
Quarter: 2025Q1

REPORT INFORMATION
  Report Type: Spontaneous
  Country: US (occurrence: None)
  Receive Date: 20250131
  Receipt Date: 20250131
  Transmission Date: 20250409
  Serious: No
  Sender: FDA-CTU
  Company Number: None

PATIENT
  Age: 71 Year
  Sex: Male

DRUGS (3)
  1. TIRZEPATIDE [Suspect]
     Active Substance: TIRZEPATIDE
     Indication: Diabetes mellitus
     Dates: start: 20240821
  2. SITAGLIPTIN [Suspect]
     Active Substance: SITAGLIPTIN
  3. METFORMIN [Suspect]
     Active Substance: METFORMIN HYDROCHLORIDE

REACTIONS (5)
  - Flatulence [None]
  - Eructation [None]
  - Diabetes mellitus inadequate control [None]
  - Gastrointestinal disorder [None]
  - Adverse event [None]

NARRATIVE: CASE EVENT DATE: 20240909
